FAERS Safety Report 9794097 (Version 1)
Quarter: 2014Q1

REPORT INFORMATION
  Report Type: Spontaneous
  Country: US (occurrence: US)
  Receive Date: 20140102
  Receipt Date: 20140102
  Transmission Date: 20141002
  Serious: No
  Sender: FDA-Public Use
  Company Number: US-AMGEN-USASP2013088910

PATIENT
  Age: 72 Year
  Sex: Female

DRUGS (3)
  1. ENBREL [Suspect]
     Indication: RHEUMATOID ARTHRITIS
     Dosage: 50 MG, QWK
     Route: 065
     Dates: start: 20130528
  2. PREDNISONE [Concomitant]
     Dosage: 5 MG, QD
  3. LEFLUNOMIDE [Concomitant]
     Dosage: 20 MG, QD
     Dates: start: 20130126

REACTIONS (7)
  - Head injury [Recovered/Resolved]
  - Fall [Recovered/Resolved]
  - Muscle tightness [Not Recovered/Not Resolved]
  - Joint stiffness [Not Recovered/Not Resolved]
  - Hypoaesthesia [Not Recovered/Not Resolved]
  - Tooth disorder [Not Recovered/Not Resolved]
  - Anxiety [Not Recovered/Not Resolved]
